APPROVED DRUG PRODUCT: YEZTUGO
Active Ingredient: LENACAPAVIR SODIUM
Strength: EQ 463.5MG BASE/1.5ML (EQ 309MG BASE/ML)
Dosage Form/Route: SOLUTION;SUBCUTANEOUS
Application: N220018 | Product #001
Applicant: GILEAD SCIENCES INC
Approved: Jun 18, 2025 | RLD: Yes | RS: Yes | Type: RX

PATENTS:
Patent 11807625 | Expires: Nov 25, 2040
Patent 9951043 | Expires: Feb 28, 2034
Patent 11267799 | Expires: Aug 16, 2038
Patent 10071985 | Expires: Aug 17, 2037

EXCLUSIVITY:
Code: NCE | Date: Dec 22, 2027
Code: NP | Date: Jun 18, 2028